FAERS Safety Report 10538525 (Version 2)
Quarter: 2014Q4

REPORT INFORMATION
  Report Type: Spontaneous
  Country: US (occurrence: US)
  Receive Date: 20141023
  Receipt Date: 20141023
  Transmission Date: 20150529
  Serious: Yes (Hospitalization, Other)
  Sender: FDA-Public Use
  Company Number: US-GLAXOSMITHKLINE-A0873070A

PATIENT
  Sex: Female

DRUGS (1)
  1. AVANDIA [Suspect]
     Active Substance: ROSIGLITAZONE MALEATE
     Dosage: 4 MG, BID
     Route: 048
     Dates: start: 20040901, end: 20051201

REACTIONS (6)
  - Coronary artery disease [Unknown]
  - Cardiac valve disease [Unknown]
  - Cardiac disorder [Recovered/Resolved]
  - Angina unstable [Unknown]
  - Coronary arterial stent insertion [Unknown]
  - Cardiac failure congestive [Unknown]
